FAERS Safety Report 18628700 (Version 2)
Quarter: 2021Q1

REPORT INFORMATION
  Report Type: Spontaneous
  Country: US (occurrence: US)
  Receive Date: 20201217
  Receipt Date: 20210222
  Transmission Date: 20210419
  Serious: No
  Sender: FDA-Public Use
  Company Number: US-BAYER-2020-277296

PATIENT
  Age: 32 Year
  Sex: Female

DRUGS (1)
  1. KYLEENA [Suspect]
     Active Substance: LEVONORGESTREL
     Indication: CONTRACEPTION
     Dosage: 17.5 ?G PER DAY CONTINUOUSLY
     Route: 015
     Dates: start: 201703

REACTIONS (3)
  - Medical device pain [Recovering/Resolving]
  - Dysmenorrhoea [Not Recovered/Not Resolved]
  - Amenorrhoea [Recovered/Resolved]

NARRATIVE: CASE EVENT DATE: 2017
